FAERS Safety Report 24932498 (Version 1)
Quarter: 2025Q1

REPORT INFORMATION
  Report Type: Spontaneous
  Country: CH (occurrence: CH)
  Receive Date: 20250205
  Receipt Date: 20250205
  Transmission Date: 20250409
  Serious: No
  Sender: EXELIXIS
  Company Number: CH-IPSEN Group, Research and Development-2024-16457

PATIENT
  Age: 14 Year
  Sex: Female
  Weight: 55 kg

DRUGS (3)
  1. CABOMETYX [Suspect]
     Active Substance: CABOZANTINIB S-MALATE
     Indication: Osteosarcoma
     Dosage: 20 MG, QD
     Route: 065
     Dates: start: 20240816
  2. CABOMETYX [Suspect]
     Active Substance: CABOZANTINIB S-MALATE
     Indication: Off label use
     Dosage: 40 MG, QD
     Route: 065
     Dates: start: 20240823, end: 20240826
  3. GABAPENTIN [Concomitant]
     Active Substance: GABAPENTIN
     Indication: Neuralgia
     Route: 048
     Dates: start: 202307

REACTIONS (7)
  - Mucosal dryness [Unknown]
  - Pruritus genital [Unknown]
  - Palmar erythema [Unknown]
  - Mucosal pain [Unknown]
  - Erythema [Unknown]
  - Pruritus [Unknown]
  - Off label use [Unknown]

NARRATIVE: CASE EVENT DATE: 20240816
